FAERS Safety Report 21750948 (Version 3)
Quarter: 2022Q4

REPORT INFORMATION
  Report Type: Spontaneous
  Country: US (occurrence: US)
  Receive Date: 20221219
  Receipt Date: 20221230
  Transmission Date: 20230112
  Serious: No
  Sender: FDA-Public Use
  Company Number: US-SANOFI-01407290

PATIENT
  Sex: Male

DRUGS (1)
  1. SOLIQUA 100/33 [Suspect]
     Active Substance: INSULIN GLARGINE\LIXISENATIDE

REACTIONS (2)
  - Blood glucose increased [Unknown]
  - Device issue [Unknown]

NARRATIVE: CASE EVENT DATE: 20221214
